FAERS Safety Report 25851392 (Version 1)
Quarter: 2025Q3

REPORT INFORMATION
  Report Type: Report from Study
  Country: US (occurrence: US)
  Receive Date: 20250926
  Receipt Date: 20250926
  Transmission Date: 20251021
  Serious: Yes (Hospitalization, Other)
  Sender: UPSHER SMITH LABORATORIES
  Company Number: US-UPSHER-SMITH LABORATORIES, LLC-20250701001

PATIENT
  Age: 2 Year
  Sex: Female
  Weight: 17.823 kg

DRUGS (2)
  1. VIGADRONE [Suspect]
     Active Substance: VIGABATRIN
     Indication: Infantile spasms
     Dates: start: 20231130
  2. VIGADRONE [Suspect]
     Active Substance: VIGABATRIN
     Dates: start: 20231130

REACTIONS (5)
  - Respiratory disorder [Recovered/Resolved]
  - Pulmonary oedema [Recovered/Resolved]
  - Status epilepticus [Recovered/Resolved]
  - Acute respiratory failure [Unknown]
  - Withdrawal syndrome [Unknown]

NARRATIVE: CASE EVENT DATE: 20250601
